FAERS Safety Report 6878092 (Version 2)
Quarter: 2016Q1

REPORT INFORMATION
  Report Type: Spontaneous
  Country: NL (occurrence: NL)
  Receive Date: 20090112
  Receipt Date: 20160218
  Transmission Date: 20160526
  Serious: Yes (Death, Other)
  Sender: FDA-Public Use
  Company Number: NL-BRISTOL-MYERS SQUIBB COMPANY-14462964

PATIENT
  Age: 32 Year
  Sex: Female

DRUGS (3)
  1. BLEOMYCIN SULFATE [Suspect]
     Active Substance: BLEOMYCIN SULFATE
     Indication: HEPATIC CANCER
     Dosage: 30 MG, UNK
     Route: 065
  2. VEPESID [Suspect]
     Active Substance: ETOPOSIDE
     Indication: HEPATIC CANCER
     Dosage: 26 PER CYCLE
     Route: 065
  3. BRIPLATIN [Suspect]
     Active Substance: CISPLATIN
     Indication: HEPATIC CANCER
     Dosage: 55 MG, UNK
     Route: 065

REACTIONS (3)
  - Sepsis [Fatal]
  - Bone marrow failure [Fatal]
  - Exposure during pregnancy [Recovered/Resolved]
